FAERS Safety Report 4668481-6 (Version None)
Quarter: 2005Q2

REPORT INFORMATION
  Report Type: 
  Country: None (occurrence: None)
  Receive Date: 20050518
  Receipt Date: 20050426
  Transmission Date: 20051028
  Serious: Yes (Other)
  Sender: FDA-Public Use
  Company Number: B0359811A

PATIENT
  Sex: Male

DRUGS (1)
  1. PAXIL [Suspect]
     Dates: start: 20021101, end: 20050101

REACTIONS (5)
  - AGGRESSION [None]
  - DIARRHOEA [None]
  - DRUG WITHDRAWAL SYNDROME [None]
  - FEELING ABNORMAL [None]
  - MOOD SWINGS [None]
